FAERS Safety Report 14661568 (Version 2)
Quarter: 2018Q1

REPORT INFORMATION
  Report Type: Report from Study
  Country: US (occurrence: US)
  Receive Date: 20180320
  Receipt Date: 20180330
  Transmission Date: 20180509
  Serious: Yes (Other)
  Sender: FDA-Public Use
  Company Number: US-PFIZER INC-2018115911

PATIENT
  Age: 39 Year
  Sex: Female

DRUGS (3)
  1. GENTAMICIN SULFATE. [Suspect]
     Active Substance: GENTAMICIN SULFATE
     Dosage: UNK
  2. CARBOPLATIN. [Suspect]
     Active Substance: CARBOPLATIN
     Indication: GENITAL NEOPLASM MALIGNANT FEMALE
     Dosage: UNK
  3. TAXOL [Suspect]
     Active Substance: PACLITAXEL
     Indication: GENITAL NEOPLASM MALIGNANT FEMALE
     Dosage: UNK

REACTIONS (3)
  - Deafness [Unknown]
  - Ototoxicity [Unknown]
  - Vestibular disorder [Unknown]
